FAERS Safety Report 6918659-3 (Version None)
Quarter: 2010Q3

REPORT INFORMATION
  Report Type: 
  Country: None (occurrence: None)
  Receive Date: 20100811
  Receipt Date: 20100730
  Transmission Date: 20110219
  Serious: Yes (Hospitalization)
  Sender: FDA-Public Use
  Company Number: DE-PFIZER INC-2010095990

PATIENT
  Age: 71 Year
  Sex: Male

DRUGS (2)
  1. SUNITINIB MALATE [Suspect]
     Indication: RENAL CELL CARCINOMA
     Dosage: UNK
     Dates: start: 20100702
  2. ATACAND [Concomitant]
     Indication: HYPERTENSION
     Dosage: 4 MG, UNK

REACTIONS (1)
  - SYNCOPE [None]
